FAERS Safety Report 11897536 (Version 1)
Quarter: 2016Q1

REPORT INFORMATION
  Report Type: Spontaneous
  Country: US (occurrence: US)
  Receive Date: 20160108
  Receipt Date: 20160108
  Transmission Date: 20160526
  Serious: No
  Sender: FDA-Public Use
  Company Number: US-BRISTOL-MYERS SQUIBB COMPANY-BMS-2015-093167

PATIENT
  Sex: Male
  Weight: 124.26 kg

DRUGS (16)
  1. VALSARTAN HCTZ [Concomitant]
     Active Substance: HYDROCHLOROTHIAZIDE\VALSARTAN
     Indication: PRODUCT USED FOR UNKNOWN INDICATION
     Route: 065
  2. LANTUS [Concomitant]
     Active Substance: INSULIN GLARGINE
     Dosage: 50 UNIT, QD
     Dates: start: 20150323
  3. LYRICA [Suspect]
     Active Substance: PREGABALIN
     Indication: DIABETES MELLITUS
     Route: 065
  4. BENAZEPRIL HCL [Concomitant]
     Active Substance: BENAZEPRIL HYDROCHLORIDE
     Indication: DIABETES MELLITUS
     Dosage: 1 TAB, BID
     Route: 048
     Dates: start: 20150420
  5. METFORMIN HYDROCHLORIDE. [Concomitant]
     Active Substance: METFORMIN HYDROCHLORIDE
     Indication: DIABETES MELLITUS
     Dosage: 1 TAB, BID
     Route: 065
     Dates: start: 20150330
  6. TRAMADOL HCL [Concomitant]
     Active Substance: TRAMADOL HYDROCHLORIDE
     Indication: OSTEOARTHRITIS
     Dosage: 1 TAB, Q8H
     Route: 065
  7. TOVIAZ [Suspect]
     Active Substance: FESOTERODINE FUMARATE
     Indication: URINE ANALYSIS ABNORMAL
     Dosage: 4 MG, UNK
     Route: 048
     Dates: start: 20141029
  8. LANTUS [Concomitant]
     Active Substance: INSULIN GLARGINE
     Indication: DIABETES MELLITUS
     Dosage: 34 UNIT, UNK
     Route: 065
     Dates: start: 20151112
  9. NOVOLIN [Concomitant]
     Active Substance: INSULIN HUMAN
     Indication: DIABETES MELLITUS
     Dosage: 20 UNIT, UNK
     Route: 065
     Dates: start: 20150729
  10. BACTRIM DS [Concomitant]
     Active Substance: SULFAMETHOXAZOLE\TRIMETHOPRIM
     Indication: CHRONIC SINUSITIS
     Dosage: 1 TAB, BID
     Route: 065
  11. OMEPRAZOLE. [Concomitant]
     Active Substance: OMEPRAZOLE
     Indication: DIABETES MELLITUS
     Dosage: UNK MG, UNK
     Route: 065
     Dates: start: 20140718
  12. LANTUS [Concomitant]
     Active Substance: INSULIN GLARGINE
     Dosage: 46 UNIT, UNK
     Dates: start: 20141120
  13. FUROSEMIDE. [Concomitant]
     Active Substance: FUROSEMIDE
     Indication: CARDIAC DISORDER
     Dosage: UNK
     Route: 065
     Dates: start: 20141112
  14. CARVEDILOL. [Concomitant]
     Active Substance: CARVEDILOL
     Indication: CARDIAC DISORDER
     Dosage: UNK
     Route: 065
     Dates: start: 20141120
  15. CRESTOR [Concomitant]
     Active Substance: ROSUVASTATIN CALCIUM
     Indication: CARDIAC DISORDER
     Dosage: UNK
     Route: 065
     Dates: start: 20141120
  16. ELIQUIS [Suspect]
     Active Substance: APIXABAN
     Indication: CARDIAC DISORDER
     Dosage: 5 MG, UNK
     Route: 065
     Dates: start: 20141120

REACTIONS (1)
  - Adverse event [Unknown]
